FAERS Safety Report 8553992-3 (Version None)
Quarter: 2012Q3

REPORT INFORMATION
  Report Type: 
  Country: None (occurrence: None)
  Receive Date: 20120731
  Receipt Date: 20120716
  Transmission Date: 20120928
  Serious: Yes (Hospitalization, Other)
  Sender: FDA-Public Use
  Company Number: NZ-ARROW-2012-12940

PATIENT
  Age: 51 Year
  Sex: Male
  Weight: 75 kg

DRUGS (6)
  1. CITALOPRAM HYDROBROMIDE [Suspect]
     Indication: INTENTIONAL OVERDOSE
     Dosage: UNK
     Route: 048
  2. METOPROLOL TARTRATE [Suspect]
     Indication: INTENTIONAL OVERDOSE
     Dosage: UNK
     Route: 048
  3. ASPIRIN [Suspect]
     Indication: OVERDOSE
     Dosage: UNK
     Route: 048
  4. QUINAPRIL [Suspect]
     Indication: INTENTIONAL OVERDOSE
     Dosage: UNK
     Route: 048
  5. AMITRIPTYLINE HCL [Suspect]
     Indication: INTENTIONAL OVERDOSE
     Dosage: }65 X 50 MG, SINGLE
     Route: 048
  6. QUETIAPINE [Suspect]
     Indication: INTENTIONAL OVERDOSE
     Dosage: UNK
     Route: 048

REACTIONS (7)
  - CARDIOTOXICITY [None]
  - HYPOTENSION [None]
  - MYDRIASIS [None]
  - OVERDOSE [None]
  - TACHYCARDIA [None]
  - UNRESPONSIVE TO STIMULI [None]
  - CONVULSION [None]
